FAERS Safety Report 9952094 (Version 1)
Quarter: 2014Q1

REPORT INFORMATION
  Report Type: Spontaneous
  Country: US (occurrence: US)
  Receive Date: 20140304
  Receipt Date: 20140304
  Transmission Date: 20141002
  Serious: No
  Sender: FDA-Public Use
  Company Number: US-AMGEN-USASP2014000603

PATIENT
  Age: 52 Year
  Sex: Female
  Weight: 64.85 kg

DRUGS (4)
  1. ENBREL [Suspect]
     Indication: RHEUMATOID ARTHRITIS
     Dosage: UNK UNK, QWK
     Route: 058
  2. LISINOPRIL [Concomitant]
     Dosage: UNK
  3. VICODIN [Concomitant]
     Dosage: UNK
  4. FISH OIL [Concomitant]
     Dosage: UNK

REACTIONS (2)
  - Therapeutic response decreased [Not Recovered/Not Resolved]
  - Pain [Not Recovered/Not Resolved]
